FAERS Safety Report 24809099 (Version 2)
Quarter: 2025Q1

REPORT INFORMATION
  Report Type: Spontaneous
  Country: CA (occurrence: CA)
  Receive Date: 20250106
  Receipt Date: 20250107
  Transmission Date: 20250408
  Serious: Yes (Other)
  Sender: TEVA
  Company Number: CA-TEVA-VS-3282493

PATIENT
  Age: 86 Year
  Sex: Female

DRUGS (2)
  1. PACLITAXEL [Suspect]
     Active Substance: PACLITAXEL
     Indication: Endometrial cancer
     Dosage: DOSE FORM: LIQUID INTRAVENOUS
     Route: 065
  2. PACLITAXEL [Suspect]
     Active Substance: PACLITAXEL
     Indication: Endometrial cancer
     Dosage: PACLITAXEL INJECTION USP?DOSE FORM: SOLUTION INTRAVENOUS
     Route: 065

REACTIONS (2)
  - Pemphigoid [Recovering/Resolving]
  - Off label use [Recovering/Resolving]
